FAERS Safety Report 7106239-9 (Version None)
Quarter: 2010Q4

REPORT INFORMATION
  Report Type: 
  Country: None (occurrence: None)
  Receive Date: 20101116
  Receipt Date: 20101103
  Transmission Date: 20110411
  Serious: Yes (Hospitalization, Other)
  Sender: FDA-Public Use
  Company Number: CH-ELI_LILLY_AND_COMPANY-CH201011000966

PATIENT
  Age: 31 Year
  Sex: Female

DRUGS (7)
  1. ZYPREXA [Suspect]
     Indication: MAJOR DEPRESSION
     Dosage: UNK, UNK
     Dates: start: 20090901
  2. ZYPREXA [Suspect]
     Dosage: 7.5 MG, DAILY (1/D)
     Dates: start: 20091101
  3. FLUCTINE [Suspect]
     Indication: MAJOR DEPRESSION
     Dosage: UNK, UNK
     Dates: start: 20090603, end: 20090715
  4. EFFEXOR [Concomitant]
     Indication: MAJOR DEPRESSION
     Dosage: 300 MG, DAILY (1/D)
     Dates: start: 20090715
  5. EFFEXOR [Concomitant]
     Dosage: 150 MG, DAILY (1/D)
     Dates: start: 20091101, end: 20100224
  6. CIPRALEX [Concomitant]
     Indication: MAJOR DEPRESSION
     Dates: start: 20090601, end: 20090715
  7. SEROQUEL [Concomitant]
     Indication: MAJOR DEPRESSION
     Dosage: 400 MG, DAILY (1/D)
     Dates: start: 20090715, end: 20091127

REACTIONS (3)
  - ANXIETY [None]
  - DEPRESSION [None]
  - DRUG EXPOSURE DURING PREGNANCY [None]
